FAERS Safety Report 9503602 (Version 3)
Quarter: 2013Q3

REPORT INFORMATION
  Report Type: Report from Study
  Country: CA (occurrence: CA)
  Receive Date: 20130906
  Receipt Date: 20130927
  Transmission Date: 20140515
  Serious: Yes (Hospitalization)
  Sender: FDA-Public Use
  Company Number: CA-ROCHE-1270015

PATIENT
  Sex: Male
  Weight: 84 kg

DRUGS (7)
  1. PEGASYS [Suspect]
     Indication: HEPATITIS C
     Route: 058
     Dates: start: 20130109, end: 20130827
  2. RIBAVIRIN [Suspect]
     Indication: HEPATITIS C
     Route: 048
     Dates: start: 20130109
  3. RIBAVIRIN [Suspect]
     Route: 065
     Dates: end: 20130827
  4. INCIVEK [Suspect]
     Indication: CHRONIC HEPATITIS C
     Route: 048
     Dates: start: 20130110, end: 20130404
  5. CIPRALEX [Concomitant]
  6. VITAMIN C [Concomitant]
  7. MILK THISTLE [Concomitant]

REACTIONS (3)
  - Endocarditis [Unknown]
  - Staphylococcal sepsis [Unknown]
  - Escherichia bacteraemia [Unknown]
